FAERS Safety Report 7897067-5 (Version None)
Quarter: 2011Q4

REPORT INFORMATION
  Report Type: 
  Country: None (occurrence: None)
  Receive Date: 20111103
  Receipt Date: 20111019
  Transmission Date: 20120403
  Serious: Yes (Other)
  Sender: FDA-Public Use
  Company Number: 2010MA002159

PATIENT
  Age: 70 Year
  Sex: Female
  Weight: 99.7913 kg

DRUGS (26)
  1. LISINOPRIL [Concomitant]
  2. APAP TAB [Concomitant]
  3. PROTONIX [Concomitant]
  4. ALBUTEROL [Concomitant]
  5. PRILOSEC [Concomitant]
  6. CIPRO [Concomitant]
  7. ALPRAZOLAM [Concomitant]
  8. AMITRIPTYLINE HCL [Concomitant]
  9. HYDROMORPHONE HCL [Concomitant]
  10. METOCLOPRAMIDE [Suspect]
     Indication: DIABETIC GASTROPARESIS
     Dosage: 10 MG; QID; PO
     Route: 048
     Dates: start: 20000901, end: 20070401
  11. PROZAC [Concomitant]
  12. INSULIN [Concomitant]
  13. LOPRESSOR [Concomitant]
  14. PLAVIX [Concomitant]
  15. ZOCOR [Concomitant]
  16. ASPIRIN [Concomitant]
  17. CALCIUM [Concomitant]
  18. SKELAXIN [Concomitant]
  19. LASIX [Concomitant]
  20. NEURONTIN [Concomitant]
  21. VITAMIN D [Concomitant]
  22. TOPROL-XL [Concomitant]
  23. WELLBUTRIN [Concomitant]
  24. LORAZEPAM [Concomitant]
  25. HYDROCODONE BITARTRATE [Concomitant]
  26. ZELNORM [Concomitant]

REACTIONS (10)
  - TARDIVE DYSKINESIA [None]
  - RESTLESS LEGS SYNDROME [None]
  - EMOTIONAL DISORDER [None]
  - INJURY [None]
  - CORNEAL REFLEX DECREASED [None]
  - EXTRAPYRAMIDAL DISORDER [None]
  - RESTING TREMOR [None]
  - MASKED FACIES [None]
  - PARKINSONISM [None]
  - ECONOMIC PROBLEM [None]
